FAERS Safety Report 5427411-X (Version None)
Quarter: 2007Q3

REPORT INFORMATION
  Report Type: 
  Country: None (occurrence: None)
  Receive Date: 20070828
  Receipt Date: 20070813
  Transmission Date: 20080115
  Serious: No
  Sender: FDA-Public Use
  Company Number: AU-ELI_LILLY_AND_COMPANY-AU200708002724

PATIENT
  Age: 48 Year
  Sex: Male

DRUGS (1)
  1. CIALIS [Suspect]
     Indication: ERECTILE DYSFUNCTION
     Dosage: UNK, AS NEEDED
     Route: 065
     Dates: start: 20050101

REACTIONS (3)
  - BLINDNESS UNILATERAL [None]
  - DIARRHOEA [None]
  - FLUSHING [None]
